FAERS Safety Report 4524962-7 (Version None)
Quarter: 2004Q4

REPORT INFORMATION
  Report Type: 
  Country: None (occurrence: None)
  Receive Date: 20041117
  Receipt Date: 20030703
  Transmission Date: 20050328
  Serious: Yes (Other)
  Sender: FDA-Public Use
  Company Number: C2003-1656.01

PATIENT
  Age: 44 Year
  Sex: Male

DRUGS (12)
  1. CLOZAPINE [Suspect]
     Indication: SCHIZOAFFECTIVE DISORDER
     Dosage: 100MG Q AM, 100MG Q HS, ORAL
     Route: 048
     Dates: start: 20030619, end: 20030702
  2. ALBUTEROL SULFATE [Concomitant]
  3. DIVALPROEX SODIUM [Concomitant]
  4. DOCUSATE SODIUM [Concomitant]
  5. LEVOTHYROXINE SODIUM [Concomitant]
  6. OLANZAPINE [Concomitant]
  7. TOPIRMATE [Concomitant]
  8. VALDECOXIB [Concomitant]
  9. CLONAZEPAM [Concomitant]
  10. SENNA [Concomitant]
  11. DESMOPRESSIN ACETATE [Concomitant]
  12. LORAZEPAM [Concomitant]

REACTIONS (1)
  - NEUTROPHIL COUNT DECREASED [None]
